FAERS Safety Report 5117925-4 (Version None)
Quarter: 2006Q3

REPORT INFORMATION
  Report Type: 
  Country: None (occurrence: None)
  Receive Date: 20060925
  Receipt Date: 20060912
  Transmission Date: 20061208
  Serious: Yes (Hospitalization)
  Sender: FDA-Public Use
  Company Number: 2006-01841

PATIENT
  Age: 57 Year
  Weight: 74 kg

DRUGS (2)
  1. VELCADE [Suspect]
     Indication: MULTIPLE MYELOMA
     Dosage: 2.40 MG/M2, INTRAVENOUS
     Route: 042
     Dates: start: 20060516, end: 20060811
  2. MOVICOL (SODIUM BICARBONATE, SODIUM CHLORIDE, MACROGOL, POTASSIUM CHLO [Concomitant]

REACTIONS (1)
  - CATHETER SITE INFECTION [None]
